FAERS Safety Report 11845867 (Version 2)
Quarter: 2019Q2

REPORT INFORMATION
  Report Type: Spontaneous
  Country: US (occurrence: US)
  Receive Date: 20151217
  Receipt Date: 20190422
  Transmission Date: 20190711
  Serious: Yes (Death, Other)
  Sender: FDA-Public Use
  Company Number: US-009507513-1512USA008616

PATIENT
  Sex: Female

DRUGS (2)
  1. JANUVIA [Suspect]
     Active Substance: SITAGLIPTIN PHOSPHATE
     Indication: TYPE 2 DIABETES MELLITUS
     Dosage: 50 MILLIGRAM, QD
     Route: 048
     Dates: start: 20100408, end: 201011
  2. JANUVIA [Suspect]
     Active Substance: SITAGLIPTIN PHOSPHATE
     Indication: TYPE 2 DIABETES MELLITUS
     Dosage: 100 MILLIGRAM, QD
     Route: 048
     Dates: start: 20101130, end: 201204

REACTIONS (11)
  - Iron deficiency anaemia [Unknown]
  - Adenocarcinoma [Not Recovered/Not Resolved]
  - Gastrointestinal haemorrhage [Unknown]
  - Chronic kidney disease [Unknown]
  - Metastases to bone [Not Recovered/Not Resolved]
  - Anaemia of chronic disease [Unknown]
  - Vulval disorder [Unknown]
  - Metastases to skin [Not Recovered/Not Resolved]
  - Hypothyroidism [Unknown]
  - Pancreatic carcinoma [Fatal]
  - Adenocarcinoma of colon [Unknown]

NARRATIVE: CASE EVENT DATE: 20100706
